FAERS Safety Report 12820678 (Version 1)
Quarter: 2016Q4

REPORT INFORMATION
  Report Type: Spontaneous
  Country: DE (occurrence: DE)
  Receive Date: 20161007
  Receipt Date: 20161007
  Transmission Date: 20170207
  Serious: Yes (Life-Threatening, Other)
  Sender: FDA-Public Use
  Company Number: DE-ROCHE-1839438

PATIENT
  Sex: Male
  Weight: 71 kg

DRUGS (1)
  1. XELODA [Suspect]
     Active Substance: CAPECITABINE
     Indication: PRODUCT USED FOR UNKNOWN INDICATION
     Route: 048

REACTIONS (4)
  - Hypokalaemia [Recovering/Resolving]
  - Rhabdomyolysis [Recovering/Resolving]
  - Hypophosphataemia [Recovering/Resolving]
  - Diarrhoea [Recovering/Resolving]
